FAERS Safety Report 22592808 (Version 2)
Quarter: 2023Q2

REPORT INFORMATION
  Report Type: Spontaneous
  Country: US (occurrence: US)
  Receive Date: 20230613
  Receipt Date: 20230628
  Transmission Date: 20230721
  Serious: Yes (Hospitalization)
  Sender: FDA-Public Use
  Company Number: US-TEVA-2023-US-2895400

PATIENT
  Age: 61 Year
  Sex: Male

DRUGS (2)
  1. WARFARIN [Interacting]
     Active Substance: WARFARIN
     Indication: Anticoagulant therapy
     Route: 048
  2. IVERMECTIN [Interacting]
     Active Substance: IVERMECTIN
     Indication: COVID-19 prophylaxis
     Dosage: INJECTING HIMSELF WITH TWO DOSES OF WEIGHT-BASED HORSE IVERMECTIN
     Route: 065

REACTIONS (5)
  - Acute hepatic failure [Recovered/Resolved]
  - Coagulopathy [Recovered/Resolved]
  - Drug interaction [Unknown]
  - Drug abuse [Unknown]
  - Overdose [Unknown]
